FAERS Safety Report 20026445 (Version 4)
Quarter: 2022Q3

REPORT INFORMATION
  Report Type: Spontaneous
  Country: US (occurrence: US)
  Receive Date: 20211102
  Receipt Date: 20220905
  Transmission Date: 20221026
  Serious: Yes (Hospitalization, Other)
  Sender: FDA-Public Use
  Company Number: US-TAKEDA-2021TUS066429

PATIENT
  Age: 42 Year
  Sex: Female

DRUGS (11)
  1. ADDERALL XR [Suspect]
     Active Substance: AMPHETAMINE ASPARTATE\AMPHETAMINE SULFATE\DEXTROAMPHETAMINE SACCHARATE\DEXTROAMPHETAMINE SULFATE
     Indication: Attention deficit hyperactivity disorder
     Dosage: UNK
     Route: 065
  2. COVID-19 VACCINE NOS [Suspect]
     Active Substance: COVID-19 VACCINE NOS
     Indication: COVID-19 immunisation
     Dosage: UNK
     Route: 065
  3. METFORMIN [Suspect]
     Active Substance: METFORMIN HYDROCHLORIDE
     Indication: Glucose tolerance impaired
     Dosage: UNK
     Route: 065
  4. ENTRESTO [Suspect]
     Active Substance: SACUBITRIL\VALSARTAN
     Indication: Cardiac failure
     Dosage: 24 MILLIGRAM, BID
     Route: 048
     Dates: start: 202109
  5. ENTRESTO [Suspect]
     Active Substance: SACUBITRIL\VALSARTAN
     Dosage: 26 MILLIGRAM, BID
     Route: 048
     Dates: start: 202109
  6. ENTRESTO [Suspect]
     Active Substance: SACUBITRIL\VALSARTAN
     Dosage: 26 MILLIGRAM, BID
     Route: 048
     Dates: start: 202109
  7. ENTRESTO [Suspect]
     Active Substance: SACUBITRIL\VALSARTAN
     Dosage: UNK UNK, BID
     Route: 048
     Dates: start: 202109
  8. CARVEDILOL [Suspect]
     Active Substance: CARVEDILOL
     Indication: Product used for unknown indication
     Dosage: 24 MILLIGRAM
     Route: 065
     Dates: start: 202109
  9. CARVEDILOL [Suspect]
     Active Substance: CARVEDILOL
     Dosage: 12.5 MILLIGRAM/KILOGRAM, BID
     Route: 065
     Dates: start: 202109
  10. FUROSEMIDE [Suspect]
     Active Substance: FUROSEMIDE
     Indication: Product used for unknown indication
     Dosage: UNK
     Route: 065
     Dates: start: 202109
  11. OMEPRAZOLE [Suspect]
     Active Substance: OMEPRAZOLE
     Indication: Dyspepsia
     Dosage: 40 MILLIGRAM, QD
     Route: 065

REACTIONS (26)
  - Cardiac failure [Unknown]
  - Weight increased [Unknown]
  - COVID-19 immunisation [Unknown]
  - Stress [Unknown]
  - Withdrawal syndrome [Unknown]
  - Psychiatric symptom [Recovering/Resolving]
  - Sinusitis [Unknown]
  - Loss of libido [Unknown]
  - Dyspnoea [Unknown]
  - Blood pressure increased [Recovering/Resolving]
  - Fatigue [Recovered/Resolved]
  - Anxiety [Unknown]
  - Dizziness [Unknown]
  - Depression [Unknown]
  - Implantable defibrillator insertion [Recovering/Resolving]
  - Dry mouth [Unknown]
  - Weight decreased [Unknown]
  - Glucose tolerance impaired [Unknown]
  - Dyspepsia [Unknown]
  - Swelling [Recovered/Resolved]
  - Vision blurred [Unknown]
  - Nausea [Unknown]
  - Asthenia [Unknown]
  - Inappropriate schedule of product administration [Unknown]
  - Product dose omission issue [Unknown]
  - Peripheral swelling [Recovered/Resolved]

NARRATIVE: CASE EVENT DATE: 20211110
